FAERS Safety Report 9434995 (Version 2)
Quarter: 2013Q3

REPORT INFORMATION
  Report Type: Report from Study
  Country: US (occurrence: US)
  Receive Date: 20130801
  Receipt Date: 20130906
  Transmission Date: 20140515
  Serious: Yes (Hospitalization, Other)
  Sender: FDA-Public Use
  Company Number: PHEH2013US016026

PATIENT
  Age: 68 Year
  Sex: Female
  Weight: 90 kg

DRUGS (22)
  1. AFINITOR [Suspect]
     Indication: BREAST CANCER METASTATIC
     Dosage: 7.5 MG, DAILY
     Route: 048
     Dates: start: 20130521, end: 20130712
  2. GLIPIZIDE [Concomitant]
     Indication: DIABETES MELLITUS
     Dosage: UNK UKN, UNK
  3. FLOMAX ^BOEHRINGER INGELHEIM^ [Concomitant]
     Dosage: UNK UKN, UNK
  4. ATENOLOL [Concomitant]
     Indication: HYPERTENSION
     Dosage: 50 MG, BID
     Route: 048
  5. HYDROCHLOROTHIAZIDE [Concomitant]
     Dosage: 25 MG, DAILY
     Route: 048
  6. IBUPROFEN [Concomitant]
     Dosage: UNK UKN, UNK
  7. EXEMESTANE [Concomitant]
     Indication: BREAST CANCER METASTATIC
     Dosage: 25 MG, DAILY
     Route: 048
  8. GLUCOTROL [Concomitant]
     Dosage: 5 MG, BID
     Route: 048
  9. HYDROCHLOROTHIAZID [Concomitant]
     Indication: HYPERTENSION
     Dosage: UNK
  10. COZAAR [Concomitant]
     Indication: HYPERTENSION
     Dosage: 100 MG, DAILY
     Route: 048
  11. LISPRO INSULIN [Concomitant]
     Route: 058
  12. MAGNESIUM OXIDE [Concomitant]
     Dosage: 400 MG, UNK
     Route: 048
  13. VALSARTAN [Concomitant]
     Dosage: 40 MG, DAILY
     Route: 048
  14. TAMSULOSIN [Concomitant]
     Dosage: 0.4 MG, UNK
     Route: 048
  15. PHENOL [Concomitant]
     Dosage: 1.4 UNK, UNK
  16. MORPHINE [Concomitant]
     Dosage: 2 MG, UNK
     Route: 042
  17. ONDANSETRON [Concomitant]
     Dosage: 4 MG, UNK
     Route: 042
  18. ENOXAPARIN [Concomitant]
     Dosage: 40 MG, UNK
  19. AROMASIN [Concomitant]
     Indication: BREAST CANCER METASTATIC
  20. LORAZEPAM [Concomitant]
     Dosage: 1 MG, (4 TIMES DAILY)
     Route: 048
  21. LOSARTAN [Concomitant]
     Dosage: 100 MG,DAILY
     Route: 048
  22. LOVENOX [Concomitant]
     Indication: THROMBOSIS PROPHYLAXIS

REACTIONS (34)
  - Intestinal obstruction [Recovered/Resolved with Sequelae]
  - Abdominal pain [Unknown]
  - Constipation [Unknown]
  - Decreased appetite [Unknown]
  - Malaise [Unknown]
  - Cystitis [Recovered/Resolved]
  - Hiccups [Unknown]
  - Gastrointestinal sounds abnormal [Unknown]
  - Paranasal sinus hypersecretion [Unknown]
  - Hot flush [Unknown]
  - Hypoaesthesia [Unknown]
  - Lymphoedema [Unknown]
  - Pollakiuria [Unknown]
  - Blood urea decreased [Unknown]
  - Nausea [Unknown]
  - Full blood count decreased [Recovered/Resolved]
  - Mouth ulceration [Recovered/Resolved]
  - Abdominal discomfort [Unknown]
  - Abdominal pain upper [Unknown]
  - Vomiting [Unknown]
  - Stomatitis [Unknown]
  - Dyspnoea [Unknown]
  - Local swelling [Unknown]
  - Dyspepsia [Unknown]
  - Blood glucose increased [Unknown]
  - Diarrhoea [Unknown]
  - Abdominal distension [Unknown]
  - Myalgia [Unknown]
  - Arthralgia [Unknown]
  - Musculoskeletal stiffness [Unknown]
  - Oropharyngeal pain [Unknown]
  - Weight decreased [Unknown]
  - Urinary tract infection [Unknown]
  - Dysuria [Unknown]
